FAERS Safety Report 20199649 (Version 1)
Quarter: 2021Q4

REPORT INFORMATION
  Report Type: Spontaneous
  Country: DE (occurrence: DE)
  Receive Date: 20211217
  Receipt Date: 20211217
  Transmission Date: 20220303
  Serious: Yes (Hospitalization)
  Sender: FDA-Public Use
  Company Number: DE-DCGMA-21190541

PATIENT
  Age: 20 Year
  Sex: Female
  Weight: 63 kg

DRUGS (2)
  1. FLUTICASONE FUROATE [Suspect]
     Active Substance: FLUTICASONE FUROATE
     Indication: Conjunctivitis allergic
     Dosage: 2 DF, PRN (2 SEPARATED DOSES, AS NECESSARY)
     Route: 045
  2. ACARIZAX [Suspect]
     Active Substance: DERMATOPHAGOIDES FARINAE\DERMATOPHAGOIDES PTERONYSSINUS
     Indication: Conjunctivitis allergic
     Dosage: UNK
     Route: 048
     Dates: start: 20210502

REACTIONS (2)
  - Hypersensitivity [Unknown]
  - Swelling face [Unknown]

NARRATIVE: CASE EVENT DATE: 20210509
